FAERS Safety Report 13120501 (Version 1)
Quarter: 2017Q1

REPORT INFORMATION
  Report Type: Spontaneous
  Country: US (occurrence: US)
  Receive Date: 20170117
  Receipt Date: 20170117
  Transmission Date: 20170428
  Serious: No
  Sender: FDA-Public Use
  Company Number: US-PFIZER INC-2017013532

PATIENT
  Age: 80 Year
  Sex: Male

DRUGS (15)
  1. RAPAMUNE [Suspect]
     Active Substance: SIROLIMUS
     Dosage: 0.5 MG, DAILY (9 AM)
     Route: 048
  2. NORVASC [Suspect]
     Active Substance: AMLODIPINE BESYLATE
     Dosage: 2.5 MG, 1X/DAY (9 PM)
     Route: 048
  3. MYFORTIC [Suspect]
     Active Substance: MYCOPHENOLATE SODIUM
     Dosage: 720 MG, 2X/DAY (9AM 9 PM)
     Route: 048
  4. DIFLUCAN [Suspect]
     Active Substance: FLUCONAZOLE
     Dosage: 200 MG, 1X/DAY (9 AM)
     Route: 048
  5. ASA [Suspect]
     Active Substance: ASPIRIN
     Dosage: 162 MG, 1X/DAY (2 TABS 9 AM)
     Route: 048
  6. ZOCOR [Suspect]
     Active Substance: SIMVASTATIN
     Dosage: 20 MG, 1X/DAY (9 PM)
     Route: 048
  7. ASA [Suspect]
     Active Substance: ASPIRIN
     Dosage: 81 MG, 1X/DAY
     Route: 048
  8. LOSARTAN. [Suspect]
     Active Substance: LOSARTAN
     Dosage: 50 MG, 2X/DAY (9 AM 9 PM)
     Route: 048
  9. PROGRAF [Suspect]
     Active Substance: TACROLIMUS\TACROLIMUS ANHYDROUS
     Dosage: 0.5 MG, 2X/DAY
     Route: 048
  10. CHLORTHALIDONE. [Suspect]
     Active Substance: CHLORTHALIDONE
     Dosage: 12.5 MG, 1X/DAY (9 A)
     Route: 048
  11. VITAMIN C [Suspect]
     Active Substance: ASCORBIC ACID
     Dosage: 500 MG, 1X/DAY (9 AM)
     Route: 048
  12. METRONIDAZOLE. [Suspect]
     Active Substance: METRONIDAZOLE
     Dosage: UNK UNK, 2X/DAY
  13. AMOXICILLIN. [Suspect]
     Active Substance: AMOXICILLIN
     Dosage: 250 MG, 2X/DAY
     Route: 048
  14. ATENOLOL. [Suspect]
     Active Substance: ATENOLOL
     Dosage: 50 MG, 2X/DAY  (9AM 9 PM)
     Route: 048
  15. NORVASC [Suspect]
     Active Substance: AMLODIPINE BESYLATE
     Dosage: 5 MG, 1X/DAY (9 AM)
     Route: 048

REACTIONS (1)
  - Drug hypersensitivity [Unknown]
